FAERS Safety Report 5958841-5 (Version None)
Quarter: 2008Q4

REPORT INFORMATION
  Report Type: 
  Country: None (occurrence: None)
  Receive Date: 20081117
  Receipt Date: 20081107
  Transmission Date: 20090506
  Serious: Yes (Life-Threatening, Hospitalization)
  Sender: FDA-Public Use
  Company Number: 280001M08JPN

PATIENT
  Age: 34 Year
  Sex: Female
  Weight: 42 kg

DRUGS (6)
  1. FERTINORM P (MENOTROPHIN) [Suspect]
     Dosage: 150 IU, 1 IN 1 DAYS, INTRAMUSCULAR
     Route: 030
     Dates: start: 20070830, end: 20070831
  2. FERTINORM P (MENOTROPHIN) [Suspect]
     Dosage: 150 IU, 1 IN 1 DAYS, INTRAMUSCULAR
     Route: 030
     Dates: start: 20060801
  3. HCG (HUMAN CHORIONIC GONADOTROPHIN) CHORIONIC  GONADOTROPHIN0 [Suspect]
     Indication: OVULATION INDUCTION
     Dosage: 5000 IU, INTRAMUSCULAR
     Route: 030
     Dates: start: 20070903, end: 20070903
  4. HCG (HUMAN CHORIONIC GONADOTROPHIN) CHORIONIC  GONADOTROPHIN0 [Suspect]
     Indication: OVULATION INDUCTION
     Dosage: 5000 IU, INTRAMUSCULAR
     Route: 030
     Dates: start: 20060801
  5. HMG INJECTION TEIZO (MENOTROPHIN) [Suspect]
     Dosage: 225 IU, 1 IN 1 DAYS, INTRAMUSCULAR
     Route: 030
     Dates: start: 20070824, end: 20070828
  6. HMG INJECTION TEIZO (MENOTROPHIN) [Suspect]
     Dosage: 225 IU, 1 IN 1 DAYS, INTRAMUSCULAR
     Route: 030
     Dates: start: 20060801

REACTIONS (1)
  - OVARIAN HYPERSTIMULATION SYNDROME [None]
